FAERS Safety Report 7097458-9 (Version None)
Quarter: 2010Q4

REPORT INFORMATION
  Report Type: 
  Country: None (occurrence: None)
  Receive Date: 20101111
  Receipt Date: 20101026
  Transmission Date: 20110411
  Serious: Yes (Hospitalization, Other)
  Sender: FDA-Public Use
  Company Number: CA-ELI_LILLY_AND_COMPANY-CA201009007276

PATIENT
  Age: 65 Year
  Sex: Female

DRUGS (10)
  1. FORTEO [Suspect]
     Indication: OSTEOPOROSIS
     Dosage: 20 UG, DAILY (1/D)
     Route: 058
     Dates: start: 20091222, end: 20100822
  2. FORTEO [Suspect]
     Dosage: 20 UG, DAILY (1/D)
     Route: 058
     Dates: start: 20100830
  3. ARTHROTEC [Concomitant]
  4. PARIET [Concomitant]
  5. BACLOFEN [Concomitant]
  6. TRIAZIDE [Concomitant]
  7. CALTRATE [Concomitant]
  8. ACETYLSALICYLIC ACID [Concomitant]
     Dosage: 81 MG, UNKNOWN
  9. METOPROLOL [Concomitant]
     Dosage: 25 MG, 2/D
  10. ESTROGEN [Concomitant]

REACTIONS (5)
  - DYSPNOEA [None]
  - FATIGUE [None]
  - HEADACHE [None]
  - PHLEBITIS [None]
  - PULMONARY EMBOLISM [None]
